FAERS Safety Report 9908049 (Version 1)
Quarter: 2014Q1

REPORT INFORMATION
  Report Type: Spontaneous
  Country: US (occurrence: None)
  Receive Date: 20140212
  Receipt Date: 20140212
  Transmission Date: 20141002
  Serious: Yes (Other)
  Sender: FDA-Public Use
  Company Number: None

PATIENT
  Age: 62 Year
  Sex: Male

DRUGS (1)
  1. AMLODIPINE BESILATE [Suspect]
     Indication: HYPERTENSION
     Dosage: 1 PILL PER DAY ONCE DAILY
     Route: 048
     Dates: start: 20140206, end: 20140209

REACTIONS (4)
  - Hypersensitivity [None]
  - Nephrolithiasis [None]
  - Renal pain [None]
  - Rash [None]
